FAERS Safety Report 25504468 (Version 1)
Quarter: 2025Q3

REPORT INFORMATION
  Report Type: Spontaneous
  Country: EU (occurrence: EU)
  Receive Date: 20250702
  Receipt Date: 20250702
  Transmission Date: 20251021
  Serious: Yes (Hospitalization)
  Sender: PFIZER
  Company Number: EU-ABBVIE-6331797

PATIENT
  Age: 62 Year
  Sex: Male

DRUGS (4)
  1. ADALIMUMAB [Suspect]
     Active Substance: ADALIMUMAB
     Route: 058
     Dates: start: 201703
  2. SECUKINUMAB [Suspect]
     Active Substance: SECUKINUMAB
     Indication: Product used for unknown indication
     Dates: start: 201707
  3. PREDNISONE [Concomitant]
     Active Substance: PREDNISONE
     Indication: Product used for unknown indication
  4. METHOTREXATE [Concomitant]
     Active Substance: METHOTREXATE
     Indication: Product used for unknown indication
     Dates: start: 201708

REACTIONS (8)
  - Terminal ileitis [Unknown]
  - Spinal disorder [Unknown]
  - Back disorder [Unknown]
  - Musculoskeletal disorder [Unknown]
  - Abdominal pain [Unknown]
  - Diarrhoea [Recovered/Resolved]
  - Condition aggravated [Unknown]
  - Arthropathy [Unknown]

NARRATIVE: CASE EVENT DATE: 20170401
